FAERS Safety Report 4624825-2 (Version None)
Quarter: 2005Q2

REPORT INFORMATION
  Report Type: 
  Country: None (occurrence: None)
  Receive Date: 20050401
  Receipt Date: 20050322
  Transmission Date: 20051028
  Serious: Yes (Hospitalization)
  Sender: FDA-Public Use
  Company Number: US-JNJFOC-20041102087

PATIENT
  Sex: Female
  Weight: 108.86 kg

DRUGS (9)
  1. REMICADE [Suspect]
     Route: 042
  2. REMICADE [Suspect]
     Route: 042
  3. REMICADE [Suspect]
     Indication: RHEUMATOID ARTHRITIS
     Route: 042
  4. TYLENOL (CAPLET) [Concomitant]
     Indication: PAIN
  5. FOLIC ACID [Concomitant]
     Indication: RHEUMATOID ARTHRITIS
  6. METHOTREXATE [Concomitant]
     Indication: RHEUMATOID ARTHRITIS
  7. CALCIUM WITH D [Concomitant]
  8. CALCIUM WITH D [Concomitant]
  9. CALCIUM WITH D [Concomitant]
     Indication: NUTRITIONAL SUPPORT

REACTIONS (10)
  - CHEST DISCOMFORT [None]
  - COAGULOPATHY [None]
  - DRUG INTERACTION [None]
  - DYSPNOEA [None]
  - FEELING HOT [None]
  - FLUSHING [None]
  - INFUSION RELATED REACTION [None]
  - PULMONARY EMBOLISM [None]
  - PULMONARY HYPERTENSION [None]
  - THROMBOSIS [None]
